FAERS Safety Report 13463233 (Version 1)
Quarter: 2017Q2

REPORT INFORMATION
  Report Type: Spontaneous
  Country: TW (occurrence: TW)
  Receive Date: 20170420
  Receipt Date: 20170420
  Transmission Date: 20170830
  Serious: Yes (Other)
  Sender: FDA-Public Use
  Company Number: TW-PFIZER INC-2017166283

PATIENT
  Age: 50 Year
  Sex: Female

DRUGS (1)
  1. XALKORI [Suspect]
     Active Substance: CRIZOTINIB
     Dosage: 1 DF, 1X/DAY

REACTIONS (3)
  - Muscular weakness [Unknown]
  - Cold sweat [Unknown]
  - Shock [Unknown]
